FAERS Safety Report 9753764 (Version 2)
Quarter: 2013Q4

REPORT INFORMATION
  Report Type: Spontaneous
  Country: US (occurrence: US)
  Receive Date: 20131213
  Receipt Date: 20131213
  Transmission Date: 20140711
  Serious: No
  Sender: FDA-Public Use
  Company Number: US-GILEAD-2010-0026516

PATIENT
  Sex: Female
  Weight: 53.07 kg

DRUGS (28)
  1. LETAIRIS [Suspect]
     Indication: PULMONARY ARTERIAL HYPERTENSION
     Route: 048
     Dates: start: 20081002
  2. NORCO [Concomitant]
  3. CRESTOR [Concomitant]
  4. PREVACID [Concomitant]
  5. FUROSEMIDE [Concomitant]
  6. SLOW FE [Concomitant]
  7. KLOR-CON [Concomitant]
  8. XYZAL [Concomitant]
  9. VIVELLE [Concomitant]
  10. BONIVA [Concomitant]
  11. CENTRUM SILVER [Concomitant]
  12. SINGULAIR [Concomitant]
  13. COZAAR [Concomitant]
  14. ZOLOFT [Concomitant]
  15. METHOTREXATE [Concomitant]
  16. PREDNISONE [Concomitant]
  17. SYNTHROID [Concomitant]
  18. CLARINEX [Concomitant]
  19. FOLIC ACID [Concomitant]
  20. FOLTX [Concomitant]
  21. CALCIUM [Concomitant]
  22. GLUCOSAMINE [Concomitant]
  23. SUPER B-50 COMPLEX [Concomitant]
  24. ASPIRIN [Concomitant]
  25. ZETIA [Concomitant]
  26. VITAMIN D [Concomitant]
  27. TRIGLIDE [Concomitant]
  28. MYCOPHENOLATE [Concomitant]

REACTIONS (1)
  - Hypertrichosis [Unknown]
